FAERS Safety Report 22621918 (Version 1)
Quarter: 2023Q2

REPORT INFORMATION
  Report Type: Spontaneous
  Country: JP (occurrence: JP)
  Receive Date: 20230620
  Receipt Date: 20230620
  Transmission Date: 20230721
  Serious: Yes (Other)
  Sender: FDA-Public Use
  Company Number: JP-NEUROCRINE BIOSCIENCES INC.-2023NBI05166

PATIENT

DRUGS (11)
  1. VALBENAZINE [Suspect]
     Active Substance: VALBENAZINE
     Indication: Blepharospasm
     Dosage: 80 MILLIGRAM, QD
     Route: 048
  2. VALBENAZINE [Suspect]
     Active Substance: VALBENAZINE
     Dosage: 40 MILLIGRAM, QD
     Route: 048
  3. BOTULISM ANTITOXIN NOS [Concomitant]
     Active Substance: BOTULISM ANTITOXIN
  4. RIVOTRIL [Concomitant]
     Active Substance: CLONAZEPAM
  5. ABILIFY [Concomitant]
     Active Substance: ARIPIPRAZOLE
  6. SYMMETREL [Concomitant]
     Active Substance: AMANTADINE HYDROCHLORIDE
  7. ZOLPIDEM TARTRATE [Concomitant]
     Active Substance: ZOLPIDEM TARTRATE
  8. MIANSERIN [Concomitant]
     Active Substance: MIANSERIN
  9. TRINTELLIX [Concomitant]
     Active Substance: VORTIOXETINE HYDROBROMIDE
  10. REXULTI [Concomitant]
     Active Substance: BREXPIPRAZOLE
  11. AKINETON [Concomitant]
     Active Substance: BIPERIDEN HYDROCHLORIDE

REACTIONS (5)
  - Suicidal ideation [Unknown]
  - Dyslalia [Unknown]
  - Depressive symptom [Unknown]
  - Tremor [Unknown]
  - Off label use [Recovering/Resolving]
